FAERS Safety Report 5261160-6 (Version None)
Quarter: 2007Q1

REPORT INFORMATION
  Report Type: 
  Country: None (occurrence: None)
  Receive Date: 20070309
  Receipt Date: 20070228
  Transmission Date: 20070707
  Serious: Yes (Other)
  Sender: FDA-Public Use
  Company Number: IT-AMGEN-UK203199

PATIENT
  Sex: Female

DRUGS (13)
  1. ARANESP [Suspect]
     Indication: RENAL FAILURE CHRONIC
     Route: 042
     Dates: start: 20051029, end: 20061125
  2. OMEPRAZOLE [Concomitant]
  3. TRIATEC [Concomitant]
  4. LASIX [Concomitant]
  5. ALLOPURINOL [Concomitant]
     Route: 048
  6. RENAGEL [Concomitant]
     Route: 048
  7. MAALOX FAST BLOCKER [Concomitant]
  8. HUMULIN 70/30 [Concomitant]
  9. HUMULIN L [Concomitant]
  10. ZOLOFT [Concomitant]
  11. BENZODIAZEPINE [Concomitant]
  12. IRBESARTAN [Concomitant]
     Route: 048
  13. TICLOPIDINE [Concomitant]
     Route: 048

REACTIONS (3)
  - ANAEMIA [None]
  - APLASIA PURE RED CELL [None]
  - THERAPEUTIC RESPONSE DECREASED [None]
